FAERS Safety Report 6296328-3 (Version None)
Quarter: 2009Q3

REPORT INFORMATION
  Report Type: 
  Country: None (occurrence: None)
  Receive Date: 20090804
  Receipt Date: 20090723
  Transmission Date: 20100115
  Serious: Yes (Hospitalization)
  Sender: FDA-Public Use
  Company Number: PHHY2009FR31411

PATIENT
  Sex: Male

DRUGS (5)
  1. LESCOL [Suspect]
     Dosage: 20 MG, QD
     Route: 048
     Dates: start: 20081001, end: 20090115
  2. ALYOSTAL [Suspect]
     Dosage: 110 UG, EVERY 6 WEEKS
     Route: 058
     Dates: start: 20070601, end: 20090301
  3. ZANIDIP [Concomitant]
     Dosage: 10MG PER DAY
     Dates: start: 20060101
  4. ZADITEN [Concomitant]
     Dosage: 1 DF, QD
  5. FLUTICASONE FUROATE [Concomitant]

REACTIONS (7)
  - BLOOD CREATINE PHOSPHOKINASE INCREASED [None]
  - C-REACTIVE PROTEIN INCREASED [None]
  - CONDITION AGGRAVATED [None]
  - INFLAMMATORY PAIN [None]
  - MUSCULAR WEAKNESS [None]
  - MYALGIA [None]
  - SERUM FERRITIN INCREASED [None]
